FAERS Safety Report 25854045 (Version 1)
Quarter: 2025Q3

REPORT INFORMATION
  Report Type: Spontaneous
  Country: US (occurrence: US)
  Receive Date: 20250926
  Receipt Date: 20250926
  Transmission Date: 20251020
  Serious: Yes (Death, Hospitalization, Other)
  Sender: JAZZ
  Company Number: US-JAZZ PHARMACEUTICALS-2025-US-022751

PATIENT
  Age: 18 Year
  Sex: Female

DRUGS (2)
  1. EPIDIOLEX [Suspect]
     Active Substance: CANNABIDIOL
     Indication: Epilepsy
  2. AMIKIN [Suspect]
     Active Substance: AMIKACIN SULFATE
     Indication: Product used for unknown indication

REACTIONS (5)
  - Cystic fibrosis [Fatal]
  - Increased bronchial secretion [Fatal]
  - Pneumonia [Fatal]
  - Quadriplegia [Fatal]
  - Scoliosis [Fatal]
